FAERS Safety Report 10110563 (Version 2)
Quarter: 2014Q2

REPORT INFORMATION
  Report Type: Spontaneous
  Country: CA (occurrence: CA)
  Receive Date: 20140425
  Receipt Date: 20140508
  Transmission Date: 20141212
  Serious: Yes (Hospitalization)
  Sender: FDA-Public Use
  Company Number: CA-BAYER-2014-058587

PATIENT
  Age: 64 Year
  Sex: 0

DRUGS (1)
  1. STIVARGA [Suspect]
     Indication: RECTAL CANCER
     Dosage: DAILY DOSE 120 MG
     Dates: start: 2014, end: 2014

REACTIONS (4)
  - Generalised tonic-clonic seizure [Recovered/Resolved]
  - Acute hepatic failure [Recovering/Resolving]
  - Hepatic encephalopathy [Recovered/Resolved]
  - Depressed level of consciousness [Recovered/Resolved]
